FAERS Safety Report 6240342-0 (Version None)
Quarter: 2009Q2

REPORT INFORMATION
  Report Type: 
  Country: None (occurrence: None)
  Receive Date: 20090623
  Receipt Date: 20080813
  Transmission Date: 20091009
  Serious: No
  Sender: FDA-Public Use
  Company Number: US-ASTRAZENECA-2008UW16015

PATIENT
  Age: 60 Year
  Sex: Female
  Weight: 54.4 kg

DRUGS (8)
  1. PULMICORT RESPULES [Suspect]
     Indication: CARDIAC ASTHMA
     Route: 055
  2. COUMADIN [Concomitant]
  3. LEVOTHYROXINE SODIUM [Concomitant]
  4. COZAAR [Concomitant]
  5. LASIX [Concomitant]
  6. POTASSIUM CHLORIDE [Concomitant]
  7. SINGULAIR [Concomitant]
  8. COREG [Concomitant]

REACTIONS (2)
  - BRONCHITIS [None]
  - NASOPHARYNGITIS [None]
